FAERS Safety Report 9744801 (Version 1)
Quarter: 2013Q4

REPORT INFORMATION
  Report Type: Report from Study
  Country: CN (occurrence: CN)
  Receive Date: 20131210
  Receipt Date: 20131210
  Transmission Date: 20140711
  Serious: Yes (Death)
  Sender: FDA-Public Use
  Company Number: CN-ROCHE-1317169

PATIENT
  Age: 42 Year
  Sex: Female

DRUGS (1)
  1. PEGASYS [Suspect]
     Indication: HEPATITIS C
     Route: 058
     Dates: start: 201011, end: 201201

REACTIONS (1)
  - Death [Fatal]
